FAERS Safety Report 5854337-X (Version None)
Quarter: 2008Q3

REPORT INFORMATION
  Report Type: 
  Country: None (occurrence: None)
  Receive Date: 20080822
  Receipt Date: 20080814
  Transmission Date: 20090109
  Serious: No
  Sender: FDA-Public Use
  Company Number: US-BOEHRINGER INGELHEIM GMBH, GERMANY-2008-BP-12916BP

PATIENT
  Age: 50 Year
  Sex: Female

DRUGS (4)
  1. MIRAPEX [Suspect]
     Indication: PARKINSON'S DISEASE
     Route: 048
     Dates: start: 19960101, end: 20070101
  2. AMANTADINE HCL [Concomitant]
     Indication: PARKINSON'S DISEASE
  3. CARBIDOPA AND LEVODOPA [Concomitant]
     Indication: PARKINSON'S DISEASE
  4. LODOSYN [Concomitant]
     Indication: PARKINSON'S DISEASE

REACTIONS (1)
  - COMPULSIVE SHOPPING [None]
